FAERS Safety Report 17019805 (Version 1)
Quarter: 2019Q4

REPORT INFORMATION
  Report Type: Spontaneous
  Country: US (occurrence: US)
  Receive Date: 20191112
  Receipt Date: 20191112
  Transmission Date: 20200122
  Serious: No
  Sender: FDA-Public Use
  Company Number: US-BTG-201900105

PATIENT
  Age: 27 Year
  Sex: Female

DRUGS (2)
  1. CROFAB [Suspect]
     Active Substance: CROTALIDAE POLYVALENT IMMUNE FAB (OVINE)
     Indication: SNAKE BITE
     Dosage: 8 VIALS INITIALLY OF CROFAB
     Dates: start: 20190612
  2. CROFAB [Suspect]
     Active Substance: CROTALIDAE POLYVALENT IMMUNE FAB (OVINE)
     Indication: SNAKE BITE
     Dosage: 8 MORE VIALS AFTER 4-5 HOURS OF CROFAB (TOTAL 16 VIALS)
     Dates: start: 20190612

REACTIONS (3)
  - Peripheral swelling [Unknown]
  - Wrong technique in product usage process [Unknown]
  - Pain [Not Recovered/Not Resolved]

NARRATIVE: CASE EVENT DATE: 20190612
